FAERS Safety Report 10086300 (Version 1)
Quarter: 2014Q2

REPORT INFORMATION
  Report Type: Spontaneous
  Country: NL (occurrence: NL)
  Receive Date: 20140418
  Receipt Date: 20140418
  Transmission Date: 20141212
  Serious: Yes (Hospitalization)
  Sender: FDA-Public Use
  Company Number: NL-BRACCO-000083

PATIENT
  Age: 60 Year
  Sex: Male

DRUGS (1)
  1. SONOVUE [Suspect]
     Indication: STRESS ECHOCARDIOGRAM

REACTIONS (1)
  - Kounis syndrome [Recovered/Resolved]
